FAERS Safety Report 16139372 (Version 1)
Quarter: 2019Q2

REPORT INFORMATION
  Report Type: Spontaneous
  Country: GR (occurrence: GR)
  Receive Date: 20190401
  Receipt Date: 20190401
  Transmission Date: 20190711
  Serious: Yes (Other)
  Sender: FDA-Public Use
  Company Number: GR-ROCHE-2292119

PATIENT
  Age: 53 Year
  Sex: Male

DRUGS (3)
  1. LOPERAMIDE [Concomitant]
     Active Substance: LOPERAMIDE
  2. CAPECITABINE. [Suspect]
     Active Substance: CAPECITABINE
     Indication: CROHN^S DISEASE
     Route: 065
  3. OXALIPLATIN. [Suspect]
     Active Substance: OXALIPLATIN
     Indication: CROHN^S DISEASE
     Route: 065

REACTIONS (2)
  - Nausea [Recovered/Resolved]
  - Hiccups [Recovered/Resolved]
